FAERS Safety Report 21362511 (Version 1)
Quarter: 2022Q3

REPORT INFORMATION
  Report Type: Spontaneous
  Country: DE (occurrence: DE)
  Receive Date: 20220922
  Receipt Date: 20220922
  Transmission Date: 20221027
  Serious: Yes (Hospitalization, Other)
  Sender: FDA-Public Use
  Company Number: DE-ALKEM LABORATORIES LIMITED-DE-ALKEM-2022-09942

PATIENT
  Age: 82 Year
  Sex: Female

DRUGS (6)
  1. IBUPROFEN [Suspect]
     Active Substance: IBUPROFEN
     Indication: Psoriatic arthropathy
     Dosage: 800 MILLIGRAM, ONCE WEEKLY
     Route: 065
  2. IBUPROFEN [Suspect]
     Active Substance: IBUPROFEN
     Indication: Spinal osteoarthritis
     Dosage: 800 MILLIGRAM
     Route: 065
  3. HULIO [Suspect]
     Active Substance: ADALIMUMAB-FKJP
     Indication: Psoriatic arthropathy
     Dosage: 40 MILLIGRAM, ONCE IN 2 WEEKS
     Route: 065
     Dates: start: 20210814
  4. HULIO [Suspect]
     Active Substance: ADALIMUMAB-FKJP
     Indication: Spinal osteoarthritis
     Dosage: 40 MILLIGRAM
     Route: 065
     Dates: start: 20210814
  5. METHOTREXATE [Suspect]
     Active Substance: METHOTREXATE
     Indication: Psoriatic arthropathy
     Dosage: 10 MILLIGRAM, ONCE WEEKLY
     Route: 058
     Dates: start: 20200404, end: 20210602
  6. METHOTREXATE [Suspect]
     Active Substance: METHOTREXATE
     Indication: Spinal osteoarthritis
     Dosage: 10 MILLIGRAM, ONCE WEEKLY
     Route: 058
     Dates: start: 20200404

REACTIONS (7)
  - Deep vein thrombosis [Unknown]
  - Osteoarthritis [Not Recovered/Not Resolved]
  - Escherichia urinary tract infection [Recovered/Resolved]
  - COVID-19 [Unknown]
  - Hepatic enzyme increased [Unknown]
  - Nausea [Unknown]
  - Synovial cyst [Unknown]

NARRATIVE: CASE EVENT DATE: 20210101
